FAERS Safety Report 7644638-7 (Version None)
Quarter: 2011Q3

REPORT INFORMATION
  Report Type: 
  Country: None (occurrence: None)
  Receive Date: 20110729
  Receipt Date: 20110727
  Transmission Date: 20111222
  Serious: Yes (Other)
  Sender: FDA-Public Use
  Company Number: US-PFIZER INC-2011166586

PATIENT
  Sex: Male
  Weight: 69 kg

DRUGS (3)
  1. LORAZEPAM [Concomitant]
     Indication: SLEEP DISORDER
     Dosage: 25 MG, 1X/DAY
  2. LORAZEPAM [Concomitant]
     Indication: ANXIETY
     Dosage: 0.5 MG, UNK
     Route: 048
  3. CHANTIX [Suspect]
     Indication: SMOKING CESSATION THERAPY
     Dosage: 0.5 MG, 1X/DAY
     Route: 048
     Dates: start: 20110717, end: 20110721

REACTIONS (8)
  - ABNORMAL DREAMS [None]
  - NOCTURIA [None]
  - PROSTATIC SPECIFIC ANTIGEN INCREASED [None]
  - FEELING ABNORMAL [None]
  - IMPAIRED DRIVING ABILITY [None]
  - POOR QUALITY SLEEP [None]
  - DEPRESSION [None]
  - CONFUSIONAL STATE [None]
